FAERS Safety Report 9537847 (Version 2)
Quarter: 2013Q3

REPORT INFORMATION
  Report Type: Spontaneous
  Country: NL (occurrence: NL)
  Receive Date: 20130919
  Receipt Date: 20130919
  Transmission Date: 20140515
  Serious: Yes (Hospitalization)
  Sender: FDA-Public Use
  Company Number: PHHY2013NL093896

PATIENT
  Age: 67 Year
  Sex: Female

DRUGS (7)
  1. AFINITOR [Suspect]
     Indication: BREAST CANCER METASTATIC
     Dosage: 10 MG, QD
     Route: 048
     Dates: start: 20130626, end: 20130729
  2. AFINITOR [Suspect]
     Dosage: UNK UKN, UNK
  3. FUROSEMIDE [Concomitant]
     Dosage: 40 MG, UNK
     Route: 048
  4. AMOXICILLIN + CLAVULANIC ACID [Concomitant]
     Dosage: 1 DF, TID
     Route: 048
  5. METFORMIN [Concomitant]
     Dosage: 500 MG, BID
  6. EXEMESTANE [Concomitant]
     Dosage: 25 MG, UNK
     Route: 048
  7. CIPROXIN                                /DEN/ [Concomitant]
     Dosage: 500 MG, BID
     Dates: start: 20130721, end: 20130729

REACTIONS (3)
  - Cardiac failure [Not Recovered/Not Resolved]
  - Lung disorder [Not Recovered/Not Resolved]
  - Pneumonia [Not Recovered/Not Resolved]
